FAERS Safety Report 10600588 (Version 1)
Quarter: 2014Q4

REPORT INFORMATION
  Report Type: Spontaneous
  Country: GB (occurrence: GB)
  Receive Date: 20141124
  Receipt Date: 20141124
  Transmission Date: 20150529
  Serious: Yes (Other)
  Sender: FDA-Public Use
  Company Number: GB-BRISTOL-MYERS SQUIBB COMPANY-21599733

PATIENT
  Age: 59 Year
  Sex: Male

DRUGS (2)
  1. SUTENT [Suspect]
     Active Substance: SUNITINIB MALATE
     Indication: METASTATIC RENAL CELL CARCINOMA
     Dosage: REDUCED:37.5MG
  2. HYDREA [Suspect]
     Active Substance: HYDROXYUREA
     Indication: METASTATIC RENAL CELL CARCINOMA
     Dosage: REDUCED: 1G DAILY

REACTIONS (4)
  - Lethargy [Unknown]
  - Off label use [Unknown]
  - Pulmonary mass [Unknown]
  - Stomatitis [Recovered/Resolved]
